FAERS Safety Report 7204074-4 (Version None)
Quarter: 2010Q4

REPORT INFORMATION
  Report Type: 
  Country: None (occurrence: None)
  Receive Date: 20101230
  Receipt Date: 20101220
  Transmission Date: 20110411
  Serious: Yes (Hospitalization)
  Sender: FDA-Public Use
  Company Number: JP-ELI_LILLY_AND_COMPANY-JP201011005005

PATIENT
  Sex: Female

DRUGS (4)
  1. ZYPREXA [Suspect]
     Indication: BIPOLAR I DISORDER
     Dosage: 20 UG, DAILY (1/D)
     Route: 048
     Dates: start: 20100827
  2. HIRNAMIN [Concomitant]
     Indication: INSOMNIA
     Dosage: 15 MG, DAILY (1/D)
     Route: 048
     Dates: start: 20100930
  3. RISPERDAL [Concomitant]
     Indication: BIPOLAR I DISORDER
     Dosage: 4 MG, DAILY (1/D)
     Route: 048
     Dates: start: 20101003, end: 20101007
  4. MYSLEE [Concomitant]
     Indication: INSOMNIA
     Dosage: 5 MG, UNK
     Route: 048
     Dates: start: 20100930

REACTIONS (2)
  - BIPOLAR DISORDER [None]
  - DRUG EXPOSURE DURING PREGNANCY [None]
